FAERS Safety Report 17082265 (Version 1)
Quarter: 2019Q4

REPORT INFORMATION
  Report Type: Spontaneous
  Country: AU (occurrence: AU)
  Receive Date: 20191127
  Receipt Date: 20191127
  Transmission Date: 20200122
  Serious: Yes (Other)
  Sender: FDA-Public Use
  Company Number: AU-APOTEX-2019AP025070

PATIENT
  Sex: Female

DRUGS (1)
  1. APO-SERTRALINE [Suspect]
     Active Substance: SERTRALINE HYDROCHLORIDE
     Indication: DEPRESSION
     Dosage: 2 DF, QD
     Route: 048

REACTIONS (4)
  - Product substitution issue [Unknown]
  - Dyspnoea [Unknown]
  - Choking [Unknown]
  - Hypersensitivity [Unknown]
